FAERS Safety Report 5151581-4 (Version None)
Quarter: 2006Q4

REPORT INFORMATION
  Report Type: 
  Country: None (occurrence: None)
  Receive Date: 20061115
  Receipt Date: 20050707
  Transmission Date: 20070319
  Serious: No
  Sender: FDA-Public Use
  Company Number: US-BRISTOL-MYERS SQUIBB COMPANY-13029616

PATIENT
  Age: 41 Year
  Sex: Male
  Weight: 62 kg

DRUGS (2)
  1. SUSTIVA [Suspect]
     Indication: HIV INFECTION
  2. COMBIVIR [Concomitant]

REACTIONS (2)
  - DRUG RESISTANCE [None]
  - MALE ORGASMIC DISORDER [None]
